FAERS Safety Report 8240714-9 (Version None)
Quarter: 2012Q1

REPORT INFORMATION
  Report Type: 
  Country: None (occurrence: None)
  Receive Date: 20120328
  Receipt Date: 20120319
  Transmission Date: 20120608
  Serious: Yes (Hospitalization)
  Sender: FDA-Public Use
  Company Number: US-JNJFOC-20120304996

PATIENT
  Sex: Female
  Weight: 78.02 kg

DRUGS (6)
  1. UNKNOWN MEDICATION [Concomitant]
     Indication: SLEEP DISORDER
     Route: 048
     Dates: start: 20110101
  2. NEXIUM [Concomitant]
     Indication: GASTROOESOPHAGEAL REFLUX DISEASE
     Route: 048
  3. UNKNOWN MEDICATION [Concomitant]
     Indication: BLOOD PRESSURE
     Route: 065
  4. ELMIRON [Suspect]
     Indication: CYSTITIS INTERSTITIAL
     Route: 048
     Dates: start: 20120201
  5. LORAZEPAM [Concomitant]
     Indication: STRESS
     Route: 048
     Dates: start: 19710101
  6. LORAZEPAM [Concomitant]
     Indication: PANIC ATTACK
     Route: 048
     Dates: start: 19710101

REACTIONS (7)
  - BACK INJURY [None]
  - WEIGHT DECREASED [None]
  - ALOPECIA [None]
  - INTERVERTEBRAL DISC PROTRUSION [None]
  - PANIC ATTACK [None]
  - DYSURIA [None]
  - DECREASED APPETITE [None]
